FAERS Safety Report 24764399 (Version 1)
Quarter: 2024Q4

REPORT INFORMATION
  Report Type: Spontaneous
  Country: NO (occurrence: NO)
  Receive Date: 20241223
  Receipt Date: 20241223
  Transmission Date: 20250114
  Serious: Yes (Hospitalization, Other)
  Sender: CHEPLAPHARM
  Company Number: NO-CHEPLA-2024015880

PATIENT
  Age: 21 Year
  Sex: Female

DRUGS (20)
  1. CLONAZEPAM [Suspect]
     Active Substance: CLONAZEPAM
     Indication: Status epilepticus
  2. VALPROATE [Suspect]
     Active Substance: VALPROIC ACID
     Indication: Status epilepticus
  3. VALPROATE [Suspect]
     Active Substance: VALPROIC ACID
     Indication: Status epilepticus
  4. LEVETIRACETAM [Suspect]
     Active Substance: LEVETIRACETAM
     Indication: Status epilepticus
  5. LEVETIRACETAM [Suspect]
     Active Substance: LEVETIRACETAM
     Indication: Status epilepticus
  6. ZONISAMIDE [Suspect]
     Active Substance: ZONISAMIDE
     Indication: Status epilepticus
  7. ZONISAMIDE [Suspect]
     Active Substance: ZONISAMIDE
     Indication: Status epilepticus
  8. CLOBAZAM [Suspect]
     Active Substance: CLOBAZAM
     Indication: Status epilepticus
  9. CLOBAZAM [Suspect]
     Active Substance: CLOBAZAM
     Indication: Status epilepticus
  10. SULTHIAME [Suspect]
     Active Substance: SULTHIAME
     Indication: Status epilepticus
  11. PERAMPANEL [Suspect]
     Active Substance: PERAMPANEL
     Indication: Status epilepticus
  12. PROPOFOL [Suspect]
     Active Substance: PROPOFOL
     Indication: Status epilepticus
  13. KETAMINE [Suspect]
     Active Substance: KETAMINE
     Indication: Status epilepticus
  14. MIDAZOLAM [Suspect]
     Active Substance: MIDAZOLAM
     Indication: Status epilepticus
  15. FENTANYL [Suspect]
     Active Substance: FENTANYL
     Indication: Status epilepticus
  16. THIOPENTAL [Suspect]
     Active Substance: THIOPENTAL
     Indication: Status epilepticus
  17. DEXMEDETOMIDINE [Suspect]
     Active Substance: DEXMEDETOMIDINE
     Indication: Status epilepticus
  18. METHYLPREDNISOLONE [Suspect]
     Active Substance: METHYLPREDNISOLONE
     Indication: Status epilepticus
  19. ANAKINRA [Suspect]
     Active Substance: ANAKINRA
     Indication: Status epilepticus
  20. MAGNESIUM [Suspect]
     Active Substance: MAGNESIUM
     Indication: Status epilepticus

REACTIONS (5)
  - Pneumonia [Unknown]
  - Hypertransaminasaemia [Unknown]
  - Ammonia abnormal [Unknown]
  - Intensive care unit acquired weakness [Unknown]
  - Drug ineffective [Unknown]
